FAERS Safety Report 9319678 (Version 1)
Quarter: 2013Q1

REPORT INFORMATION
  Report Type: Spontaneous
  Country: IT (occurrence: None)
  Receive Date: 20121129
  Receipt Date: 20121129
  Transmission Date: 20140127
  Serious: Yes (Hospitalization, Other)
  Sender: FDA-Public Use
  Company Number: 09-AUR-09617

PATIENT
  Age: 57 Year
  Sex: Male
  Weight: 65 kg

DRUGS (2)
  1. ATENOLOL (ATENOLOL) [Suspect]
     Indication: PRODUCT USED FOR UNKNOWN INDICATION
     Dosage: ONE TABLET IN ONE DAY.
     Route: 048
  2. VERAPAMIL (VERAPAMIL) [Suspect]
     Indication: PRODUCT USED FOR UNKNOWN INDICATION
     Dosage: ONE TABLET PER DAY.
     Route: 048

REACTIONS (9)
  - Overdose [None]
  - Pulse absent [None]
  - Hypoventilation [None]
  - Cold sweat [None]
  - Hypotension [None]
  - Sinus bradycardia [None]
  - Atrioventricular block first degree [None]
  - Pulmonary oedema [None]
  - Device infusion issue [None]
